FAERS Safety Report 23200184 (Version 3)
Quarter: 2024Q2

REPORT INFORMATION
  Report Type: Report from Study
  Country: GB (occurrence: GB)
  Receive Date: 20231118
  Receipt Date: 20240413
  Transmission Date: 20240715
  Serious: Yes (Other)
  Sender: FDA-Public Use
  Company Number: GB-JNJFOC-20231130186

PATIENT
  Sex: Female

DRUGS (2)
  1. TREMFYA [Suspect]
     Active Substance: GUSELKUMAB
     Indication: Psoriasis
     Route: 058
     Dates: start: 20200918
  2. TIZANIDINE [Concomitant]
     Active Substance: TIZANIDINE

REACTIONS (3)
  - Lower respiratory tract infection [Recovered/Resolved]
  - Disability [Not Recovered/Not Resolved]
  - Agoraphobia [Unknown]
